FAERS Safety Report 7659084-X (Version None)
Quarter: 2011Q3

REPORT INFORMATION
  Report Type: 
  Country: None (occurrence: None)
  Receive Date: 20110805
  Receipt Date: 20110726
  Transmission Date: 20111222
  Serious: Yes (Hospitalization)
  Sender: FDA-Public Use
  Company Number: BE-ELI_LILLY_AND_COMPANY-BE201107008034

PATIENT
  Age: 50 Year
  Sex: Female

DRUGS (2)
  1. ALIMTA [Suspect]
     Indication: ADENOCARCINOMA
     Dosage: UNK UNK, UNKNOWN
  2. CISPLATIN [Concomitant]
     Indication: ADENOCARCINOMA
     Dosage: UNK, UNKNOWN

REACTIONS (2)
  - NEPHROPATHY TOXIC [None]
  - OTOTOXICITY [None]
